FAERS Safety Report 11148273 (Version 1)
Quarter: 2015Q2

REPORT INFORMATION
  Report Type: Spontaneous
  Country: US (occurrence: None)
  Receive Date: 20150528
  Receipt Date: 20150528
  Transmission Date: 20150821
  Serious: Yes (Other)
  Sender: FDA-Public Use
  Company Number: None

PATIENT
  Age: 8 Year
  Sex: Male
  Weight: 25 kg

DRUGS (16)
  1. ADEK MULTIVITAMIN [Concomitant]
  2. ALBUTEROL INHALER [Concomitant]
     Active Substance: ALBUTEROL
  3. SCANDISHAKE [Concomitant]
     Active Substance: DIETARY SUPPLEMENT
  4. IBUPROFEN. [Concomitant]
     Active Substance: IBUPROFEN
  5. SODIUM CHLORIDE. [Concomitant]
     Active Substance: SODIUM CHLORIDE
  6. VORICONAZOLE 200MG [Suspect]
     Active Substance: VORICONAZOLE
     Indication: ASPERGILLUS INFECTION
     Route: 048
     Dates: start: 201503, end: 201504
  7. LANSOPRAZOLE. [Concomitant]
     Active Substance: LANSOPRAZOLE
  8. METRONIDAZOLE. [Concomitant]
     Active Substance: METRONIDAZOLE
  9. CETIRIZINE [Concomitant]
     Active Substance: CETIRIZINE HYDROCHLORIDE
  10. PERTZYE [Concomitant]
     Active Substance: PANCRELIPASE AMYLASE\PANCRELIPASE LIPASE\PANCRELIPASE PROTEASE
  11. ACETYCYSTEINE [Concomitant]
  12. NEBULIZER [Concomitant]
     Active Substance: UNSPECIFIED INGREDIENT
  13. POLYETHYLENE GLYCOL [Concomitant]
     Active Substance: POLYETHYLENE GLYCOLS
  14. CHOLECALCIFEROL [Concomitant]
     Active Substance: CHOLECALCIFEROL
  15. PULMOZYM [Concomitant]
  16. LACTOBACILLUS [Concomitant]
     Active Substance: LACTOBACILLUS ACIDOPHILUS

REACTIONS (3)
  - Blister [None]
  - Rash [None]
  - Photosensitivity reaction [None]

NARRATIVE: CASE EVENT DATE: 20150401
